FAERS Safety Report 4881950-9 (Version None)
Quarter: 2006Q1

REPORT INFORMATION
  Report Type: 
  Country: None (occurrence: None)
  Receive Date: 20060117
  Receipt Date: 20060106
  Transmission Date: 20060701
  Serious: Yes (Hospitalization)
  Sender: FDA-Public Use
  Company Number: US-GLAXOSMITHKLINE-A0588234A

PATIENT
  Age: 67 Year
  Sex: Female
  Weight: 56.8 kg

DRUGS (2)
  1. TOPOTECAN [Suspect]
     Indication: UTERINE CANCER
     Dosage: 5.4MG WEEKLY
     Route: 042
     Dates: start: 20051201
  2. TAXOTERE [Suspect]
     Indication: UTERINE CANCER
     Dosage: 37.2MG WEEKLY
     Route: 042
     Dates: start: 20051201

REACTIONS (3)
  - DISEASE PROGRESSION [None]
  - OEDEMA PERIPHERAL [None]
  - VASCULAR NEOPLASM [None]
